FAERS Safety Report 5950987-0 (Version None)
Quarter: 2008Q4

REPORT INFORMATION
  Report Type: 
  Country: None (occurrence: None)
  Receive Date: 20081110
  Receipt Date: 20081028
  Transmission Date: 20090506
  Serious: Yes (Other)
  Sender: FDA-Public Use
  Company Number: 231238K08USA

PATIENT
  Age: 46 Year
  Sex: Female

DRUGS (5)
  1. REBIF [Suspect]
     Indication: MULTIPLE SCLEROSIS
     Dosage: 44 MCG, 3 IN 1 WEEKS, SUBCUTANEOUS
     Route: 058
     Dates: start: 20070725
  2. FLU VACCINE (INFLUENZA VIRUS VACCINE POLYVALENT) [Concomitant]
  3. COENZYME Q10 [Concomitant]
  4. UNSPECIFIED ANTIDEPRESSANTS (ANTIDEPRESSANTS) [Concomitant]
  5. OXYCODONE HCL [Concomitant]

REACTIONS (3)
  - CARDIOMEGALY [None]
  - CHEST PAIN [None]
  - DYSPNOEA [None]
